FAERS Safety Report 23978781 (Version 1)
Quarter: 2024Q2

REPORT INFORMATION
  Report Type: Spontaneous
  Country: ES (occurrence: ES)
  Receive Date: 20240615
  Receipt Date: 20240615
  Transmission Date: 20240716
  Serious: Yes (Hospitalization, Other)
  Sender: FDA-Public Use
  Company Number: ES-Accord-429395

PATIENT
  Age: 65 Year
  Sex: Female

DRUGS (9)
  1. HYDROXYCHLOROQUINE [Suspect]
     Active Substance: HYDROXYCHLOROQUINE
     Indication: Monoclonal gammopathy
     Dates: start: 202209
  2. AMIODARONE [Suspect]
     Active Substance: AMIODARONE
     Indication: Scleroderma
     Dates: start: 2016
  3. BISOPROLOL [Concomitant]
     Active Substance: BISOPROLOL\BISOPROLOL FUMARATE
  4. ACENOCOUMAROL [Concomitant]
     Active Substance: ACENOCOUMAROL
  5. HYDROCHLOROTHIAZIDE [Concomitant]
     Active Substance: HYDROCHLOROTHIAZIDE
  6. LOSARTAN [Concomitant]
     Active Substance: LOSARTAN
  7. SIMVASTATIN [Concomitant]
     Active Substance: SIMVASTATIN
  8. AMIODARONE [Suspect]
     Active Substance: AMIODARONE
     Indication: Monoclonal gammopathy
     Dates: start: 2016
  9. HYDROXYCHLOROQUINE [Suspect]
     Active Substance: HYDROXYCHLOROQUINE
     Indication: Scleroderma
     Dates: start: 202209

REACTIONS (3)
  - Interstitial lung disease [Unknown]
  - Acute kidney injury [Unknown]
  - Renal phospholipidosis [Unknown]

NARRATIVE: CASE EVENT DATE: 20220101
